FAERS Safety Report 9844770 (Version 1)
Quarter: 2014Q1

REPORT INFORMATION
  Report Type: Spontaneous
  Country: US (occurrence: None)
  Receive Date: 20140122
  Receipt Date: 20140122
  Transmission Date: 20141002
  Serious: Yes (Death)
  Sender: FDA-Public Use
  Company Number: B0958704A

PATIENT
  Age: 39 Year
  Sex: Female

DRUGS (6)
  1. DIPHENHYDRAMINE HYDROCHLORIDE + PARACETAMOL (FORMULATION UNKNOWN) (ACETAMIN+DIPHENHYDRAM HCL) [Suspect]
     Route: 048
  2. BUPROPION HYDROCHLORIDE UNSPECIFIED TABLET (GENERIC) (BUPROPION HYDROCHLORIDE) [Suspect]
     Route: 048
  3. BUTALBITAL+CAFFEINE+PARA (FORMULATION UNKNOWN) (GENERIC) (BUTALBITAL+CAFFEINE+PARA) [Suspect]
     Route: 048
  4. PROMETHAZINE (FORMULATION UNKNOWN) (GENERIC) (PROMETHAZINE) [Suspect]
     Route: 048
  5. CARISOPRODOL (FORMUALTION UNKNOWN) (GENERIC) (CARISOPRODOL) [Suspect]
     Route: 048
  6. ZOLPIDEM (FORMULATION UNKNOWN) (GENERIC) (ZOLPIDEM) [Suspect]
     Route: 048

REACTIONS (2)
  - Completed suicide [None]
  - Exposure via ingestion [None]
